FAERS Safety Report 10010635 (Version 3)
Quarter: 2014Q2

REPORT INFORMATION
  Report Type: Spontaneous
  Country: JP (occurrence: JP)
  Receive Date: 20140314
  Receipt Date: 20140407
  Transmission Date: 20141212
  Serious: Yes (Hospitalization)
  Sender: FDA-Public Use
  Company Number: JP-ROCHE-1343334

PATIENT
  Age: 60 Year
  Sex: Female
  Weight: 54 kg

DRUGS (4)
  1. PERJETA [Suspect]
     Indication: BREAST CANCER
     Route: 041
     Dates: start: 20140122, end: 20140122
  2. PERJETA [Suspect]
     Route: 041
     Dates: start: 20140212, end: 20140305
  3. HERCEPTIN [Suspect]
     Indication: BREAST CANCER
     Route: 041
     Dates: start: 20140122, end: 20140122
  4. HERCEPTIN [Suspect]
     Route: 041
     Dates: start: 20140212, end: 20140212

REACTIONS (2)
  - Infusion related reaction [Recovered/Resolved]
  - Anaphylactic reaction [Recovered/Resolved]
